FAERS Safety Report 10663891 (Version 1)
Quarter: 2014Q4

REPORT INFORMATION
  Report Type: Spontaneous
  Country: US (occurrence: None)
  Receive Date: 20141217
  Receipt Date: 20141217
  Transmission Date: 20150529
  Serious: Yes (Hospitalization)
  Sender: FDA-Public Use
  Company Number: 201412035

PATIENT
  Age: 43 Year
  Sex: Male

DRUGS (2)
  1. TESTIM [Suspect]
     Active Substance: TESTOSTERONE
     Indication: BLOOD TESTOSTERONE DECREASED
     Route: 062
     Dates: start: 2012, end: 20130904
  2. ANDROGEL [Suspect]
     Active Substance: TESTOSTERONE
     Indication: BLOOD TESTOSTERONE DECREASED
     Route: 061
     Dates: start: 2007, end: 2012

REACTIONS (6)
  - Cardiac failure [None]
  - Myocardial infarction [None]
  - Atrial fibrillation [None]
  - Thrombosis [None]
  - Economic problem [None]
  - Emotional disorder [None]

NARRATIVE: CASE EVENT DATE: 20130904
